FAERS Safety Report 6981454-3 (Version None)
Quarter: 2010Q3

REPORT INFORMATION
  Report Type: 
  Country: None (occurrence: None)
  Receive Date: 20100914
  Receipt Date: 20100831
  Transmission Date: 20110219
  Serious: Yes (Death)
  Sender: FDA-Public Use
  Company Number: US-MYLANLABS-2010S1015917

PATIENT
  Age: 35 Year
  Sex: Male

DRUGS (4)
  1. FENTANYL CITRATE [Suspect]
     Route: 065
  2. DULOXETINE [Suspect]
     Indication: DEPRESSION
     Route: 065
  3. HYDROCODONE [Suspect]
     Indication: PAIN
     Route: 065
  4. ACETAMINOPHEN [Suspect]
     Route: 065

REACTIONS (1)
  - DRUG TOXICITY [None]
